FAERS Safety Report 4622269-0 (Version None)
Quarter: 2005Q1

REPORT INFORMATION
  Report Type: 
  Country: None (occurrence: None)
  Receive Date: 20050324
  Receipt Date: 20050324
  Transmission Date: 20050727
  Serious: Yes (Hospitalization)
  Sender: FDA-Public Use
  Company Number: None

PATIENT
  Sex: Male
  Weight: 76.3 kg

DRUGS (2)
  1. SIMVASTATIN [Suspect]
     Indication: HYPERCHOLESTEROLAEMIA
  2. CLARITHROMYCIN [Suspect]
     Indication: HELICOBACTER INFECTION

REACTIONS (2)
  - HELICOBACTER INFECTION [None]
  - RHABDOMYOLYSIS [None]
